FAERS Safety Report 9969754 (Version 1)
Quarter: 2014Q1

REPORT INFORMATION
  Report Type: Spontaneous
  Country: US (occurrence: None)
  Receive Date: 20140304
  Receipt Date: 20140304
  Transmission Date: 20141002
  Serious: No
  Sender: FDA-Public Use
  Company Number: None

PATIENT
  Age: 59 Year
  Sex: Male
  Weight: 113.4 kg

DRUGS (1)
  1. SAVELLA [Suspect]
     Indication: BACK PAIN
     Dosage: 25 MG TWICE DAILY TWICE DAILY TAKEN BY MOUTH
     Route: 048
     Dates: start: 20140108, end: 20140122

REACTIONS (2)
  - Benign prostatic hyperplasia [None]
  - Urinary incontinence [None]
